FAERS Safety Report 8808431 (Version 2)
Quarter: 2012Q4

REPORT INFORMATION
  Report Type: 
  Country: US (occurrence: US)
  Receive Date: 20120926
  Receipt Date: 20121012
  Transmission Date: 20130627
  Serious: No
  Sender: FDA-Public Use
  Company Number: US-PFIZER INC-2012234562

PATIENT
  Age: 33 Year
  Sex: Female
  Weight: 53.52 kg

DRUGS (4)
  1. SUTENT [Suspect]
     Indication: LUNG NEOPLASM MALIGNANT
     Dosage: 50mg daily for 28 days, then 14 days off and repeat
     Dates: start: 201209
  2. MORPHINE [Concomitant]
     Dosage: UNK
  3. ATIVAN [Concomitant]
     Indication: STRESS
     Dosage: UNK
  4. ATIVAN [Concomitant]
     Indication: ANXIETY

REACTIONS (7)
  - Abdominal pain upper [Unknown]
  - Dyspepsia [Unknown]
  - Nausea [Unknown]
  - Decreased appetite [Unknown]
  - Dysgeusia [Unknown]
  - Fatigue [Not Recovered/Not Resolved]
  - Rash [Not Recovered/Not Resolved]
